FAERS Safety Report 5373304-6 (Version None)
Quarter: 2007Q2

REPORT INFORMATION
  Report Type: 
  Country: None (occurrence: None)
  Receive Date: 20070626
  Receipt Date: 20070626
  Transmission Date: 20071010
  Serious: Yes (Other)
  Sender: FDA-Public Use
  Company Number: None

PATIENT
  Sex: Male

DRUGS (17)
  1. REVLIMID [Suspect]
     Indication: MULTIPLE MYELOMA
     Dosage: 25MG DAILY 21D/28D DAILY 21D/28D PO
     Route: 048
  2. TRAZODONE HCL [Concomitant]
  3. PROCRIT [Concomitant]
  4. FENTANYL [Concomitant]
  5. HYDROMORPHONE HCL [Concomitant]
  6. GLYBURIDE [Concomitant]
  7. FLOMAX [Concomitant]
  8. VICODIN [Concomitant]
  9. PREDNISONE TAB [Concomitant]
  10. PROZAC [Concomitant]
  11. SEPTRA [Concomitant]
  12. PROPRANOLOL [Concomitant]
  13. NEORAL [Concomitant]
  14. AMOXICILLIN [Concomitant]
  15. METFORMIN [Concomitant]
  16. CELLCEPT [Concomitant]
  17. LASIX [Concomitant]

REACTIONS (5)
  - BACK PAIN [None]
  - DYSPNOEA EXERTIONAL [None]
  - FATIGUE [None]
  - HEADACHE [None]
  - PANCYTOPENIA [None]
